FAERS Safety Report 24130144 (Version 1)
Quarter: 2024Q3

REPORT INFORMATION
  Report Type: Spontaneous
  Country: IT (occurrence: IT)
  Receive Date: 20240724
  Receipt Date: 20240724
  Transmission Date: 20241017
  Serious: Yes (Other)
  Sender: AUROBINDO
  Company Number: IT-MLMSERVICE-20230524-4303640-1

PATIENT
  Age: 14 Year
  Sex: Female
  Weight: 38.4 kg

DRUGS (2)
  1. OLANZAPINE [Suspect]
     Active Substance: OLANZAPINE
     Indication: Anorexia nervosa
     Dosage: 7.5 MILLIGRAM, ONCE A DAY (UP TO 7.5 MG)
     Route: 065
  2. SERTRALINE [Concomitant]
     Active Substance: SERTRALINE HYDROCHLORIDE
     Indication: Anorexia nervosa
     Dosage: UP TO 50 MG
     Route: 065

REACTIONS (2)
  - Binge eating [Unknown]
  - Drug ineffective [Unknown]
